FAERS Safety Report 10784667 (Version 1)
Quarter: 2015Q1

REPORT INFORMATION
  Report Type: Spontaneous
  Country: IT (occurrence: None)
  Receive Date: 20150209
  Receipt Date: 20150209
  Transmission Date: 20150721
  Serious: Yes (Other)
  Sender: FDA-Public Use
  Company Number: 201500070

PATIENT
  Age: 79 Year
  Sex: Male

DRUGS (1)
  1. OFTAQUIX (LEVOFLOXACIN) UNKNOWN [Suspect]
     Active Substance: LEVOFLOXACIN
     Dates: start: 20141115, end: 20141119

REACTIONS (1)
  - Tendon rupture [None]

NARRATIVE: CASE EVENT DATE: 20141120
